FAERS Safety Report 23616536 (Version 1)
Quarter: 2024Q1

REPORT INFORMATION
  Report Type: Spontaneous
  Country: US (occurrence: None)
  Receive Date: 20240308
  Receipt Date: 20240308
  Transmission Date: 20240410
  Serious: Yes (Other)
  Sender: FDA-Public Use
  Company Number: None

PATIENT
  Age: 69 Year
  Sex: Female
  Weight: 87.75 kg

DRUGS (14)
  1. JARDIANCE [Suspect]
     Active Substance: EMPAGLIFLOZIN
     Indication: Type 2 diabetes mellitus
     Dosage: OTHER QUANTITY : 1 CAPSULE(S);?
     Route: 048
     Dates: start: 20240205, end: 20240220
  2. GLIPIZIDE [Concomitant]
     Active Substance: GLIPIZIDE
  3. METFORMIN [Concomitant]
     Active Substance: METFORMIN HYDROCHLORIDE
  4. JANUVIA [Concomitant]
     Active Substance: SITAGLIPTIN PHOSPHATE
  5. LETROZOLE [Concomitant]
     Active Substance: LETROZOLE
  6. LEVOTHYROXINE [Concomitant]
     Active Substance: LEVOTHYROXINE\LEVOTHYROXINE SODIUM
  7. DULOXETINE [Concomitant]
     Active Substance: DULOXETINE
  8. TRICOR [Concomitant]
     Active Substance: FENOFIBRATE
  9. INDERAL [Concomitant]
     Active Substance: PROPRANOLOL HYDROCHLORIDE
  10. VITAMIN B12 [Concomitant]
     Active Substance: CYANOCOBALAMIN
  11. IRON [Concomitant]
     Active Substance: IRON
  12. VITAMIN D [Concomitant]
     Active Substance: VITAMIN D NOS
  13. MAGNESIUM [Concomitant]
     Active Substance: MAGNESIUM
  14. VITAMINS [Concomitant]
     Active Substance: VITAMINS

REACTIONS (11)
  - Fungal infection [None]
  - Nausea [None]
  - Vomiting [None]
  - Diarrhoea [None]
  - Decreased appetite [None]
  - Dysgeusia [None]
  - Taste disorder [None]
  - Fatigue [None]
  - Irritability [None]
  - Dehydration [None]
  - Blood glucose increased [None]

NARRATIVE: CASE EVENT DATE: 20240220
